FAERS Safety Report 24412879 (Version 2)
Quarter: 2024Q4

REPORT INFORMATION
  Report Type: Spontaneous
  Country: US (occurrence: US)
  Receive Date: 20241008
  Receipt Date: 20241025
  Transmission Date: 20250115
  Serious: Yes (Hospitalization, Other)
  Sender: RIGEL PHARMACEUTICALS
  Company Number: US-RIGEL Pharmaceuticals INC-20241000031

PATIENT
  Age: 71 Year
  Sex: Female
  Weight: 64.8 kg

DRUGS (4)
  1. GAVRETO [Suspect]
     Active Substance: PRALSETINIB
     Indication: Lung neoplasm malignant
     Dosage: UNK
     Route: 048
     Dates: start: 20240815, end: 2024
  2. GAVRETO [Suspect]
     Active Substance: PRALSETINIB
     Dosage: 300 MG, QD
     Route: 048
     Dates: start: 2024, end: 2024
  3. GAVRETO [Suspect]
     Active Substance: PRALSETINIB
     Dosage: 200 MG, UNK
     Route: 048
     Dates: start: 2024, end: 2024
  4. GAVRETO [Suspect]
     Active Substance: PRALSETINIB
     Dosage: 100 MG, QD
     Route: 048
     Dates: start: 2024

REACTIONS (6)
  - Loss of consciousness [Unknown]
  - Fall [Unknown]
  - Head injury [Unknown]
  - Pneumonia [Unknown]
  - Balance disorder [Unknown]
  - Abdominal pain [Unknown]

NARRATIVE: CASE EVENT DATE: 20240901
